FAERS Safety Report 5706198-7 (Version None)
Quarter: 2008Q2

REPORT INFORMATION
  Report Type: 
  Country: None (occurrence: None)
  Receive Date: 20080415
  Receipt Date: 20080403
  Transmission Date: 20081010
  Serious: Yes (Disabling)
  Sender: FDA-Public Use
  Company Number: FR-SANOFI-SYNTHELABO-A02200800911

PATIENT
  Sex: Female
  Weight: 67 kg

DRUGS (4)
  1. EURELIX [Concomitant]
     Indication: HYPERTENSION
     Route: 048
  2. FLECAINIDE ACETATE [Concomitant]
     Indication: HYPERTENSION
     Route: 048
  3. MONOTILDIEM [Concomitant]
     Indication: HYPERTENSION
     Route: 048
  4. PLAVIX [Suspect]
     Indication: SENSE OF OPPRESSION
     Route: 048
     Dates: start: 20080130, end: 20080201

REACTIONS (2)
  - COCCYDYNIA [None]
  - PELVIC PAIN [None]
